FAERS Safety Report 20148448 (Version 1)
Quarter: 2021Q4

REPORT INFORMATION
  Report Type: Spontaneous
  Country: CA (occurrence: CA)
  Receive Date: 20211204
  Receipt Date: 20211204
  Transmission Date: 20220304
  Serious: Yes (Hospitalization, Other)
  Sender: FDA-Public Use
  Company Number: CA-AUROBINDO-AUR-APL-2021-049641

PATIENT
  Age: 93 Year
  Sex: Male

DRUGS (1)
  1. CLOPIDOGREL [Suspect]
     Active Substance: CLOPIDOGREL BISULFATE
     Indication: Product used for unknown indication
     Dosage: UNK
     Route: 048

REACTIONS (7)
  - Asthenia [Unknown]
  - Faeces discoloured [Unknown]
  - Melaena [Unknown]
  - Anaemia [Unknown]
  - Duodenal ulcer haemorrhage [Unknown]
  - Haemoglobin decreased [Unknown]
  - Hypotension [Unknown]
